FAERS Safety Report 4308011-1 (Version None)
Quarter: 2004Q1

REPORT INFORMATION
  Report Type: 
  Country: None (occurrence: None)
  Receive Date: 20040301
  Receipt Date: 20030313
  Transmission Date: 20041129
  Serious: No
  Sender: FDA-Public Use
  Company Number: US-BRISTOL-MYERS SQUIBB COMPANY-12211090

PATIENT
  Age: 29 Year
  Sex: Female

DRUGS (2)
  1. GLUCOPHAGE [Suspect]
     Indication: DIABETES MELLITUS
     Route: 048
  2. SYNTHROID [Concomitant]
     Dates: start: 20020901

REACTIONS (1)
  - PREGNANCY [None]
